FAERS Safety Report 9946708 (Version 1)
Quarter: 2014Q1

REPORT INFORMATION
  Report Type: Report from Study
  Country: US (occurrence: US)
  Receive Date: 20140303
  Receipt Date: 20140303
  Transmission Date: 20141002
  Serious: No
  Sender: FDA-Public Use
  Company Number: US-ABBVIE-13P-163-1060091-00

PATIENT
  Sex: Male
  Weight: 86.26 kg

DRUGS (3)
  1. HUMIRA [Suspect]
     Indication: TENDON RUPTURE
     Route: 058
     Dates: start: 201206
  2. HUMIRA [Suspect]
     Indication: ROTATOR CUFF SYNDROME
  3. AVAPRO [Concomitant]
     Indication: HYPERTENSION

REACTIONS (1)
  - Off label use [Unknown]
